FAERS Safety Report 5961140-9 (Version None)
Quarter: 2008Q4

REPORT INFORMATION
  Report Type: 
  Country: None (occurrence: None)
  Receive Date: 20081121
  Receipt Date: 20081118
  Transmission Date: 20090506
  Serious: Yes (Death)
  Sender: FDA-Public Use
  Company Number: GB-JNJFOC-20081002420

PATIENT
  Sex: Male
  Weight: 127.01 kg

DRUGS (9)
  1. RISPERDAL CONSTA [Suspect]
     Indication: SCHIZOPHRENIA
     Route: 030
  2. RISPERDAL [Suspect]
     Dosage: 4MG IN MORNING 6MG AT NIGHT
     Route: 048
  3. RISPERDAL [Suspect]
     Route: 048
  4. RISPERDAL [Suspect]
     Route: 048
  5. RISPERDAL [Suspect]
     Indication: SCHIZOPHRENIA
     Route: 048
  6. ZOPICLONE [Suspect]
     Indication: DRUG USE FOR UNKNOWN INDICATION
     Route: 065
  7. ABILIFY [Concomitant]
     Route: 065
  8. OMEPRAZOLE [Concomitant]
     Route: 048
  9. PAROXETINE HCL [Concomitant]
     Route: 065

REACTIONS (4)
  - ALCOHOL POISONING [None]
  - DRUG TOXICITY [None]
  - MENTAL DISORDER [None]
  - RASH [None]
